FAERS Safety Report 11849062 (Version 1)
Quarter: 2015Q4

REPORT INFORMATION
  Report Type: Spontaneous
  Country: US (occurrence: None)
  Receive Date: 20151217
  Receipt Date: 20151217
  Transmission Date: 20160305
  Serious: No
  Sender: FDA-Public Use
  Company Number: None

PATIENT
  Age: 71 Year
  Sex: Male
  Weight: 83.6 kg

DRUGS (1)
  1. AZATHIOPRINE. [Suspect]
     Active Substance: AZATHIOPRINE
     Indication: CARDIAC OPERATION
     Dosage: MG PO
     Route: 048
     Dates: start: 20150107

REACTIONS (1)
  - Positron emission tomogram abnormal [None]

NARRATIVE: CASE EVENT DATE: 20150924
